FAERS Safety Report 9003152 (Version 1)
Quarter: 2013Q1

REPORT INFORMATION
  Report Type: Not Available
  Country: CN (occurrence: CN)
  Receive Date: 20130108
  Receipt Date: 20130108
  Transmission Date: 20140127
  Serious: Yes (Other)
  Sender: FDA-Public Use
  Company Number: CN-NAPPMUNDI-DEU-2012-0010229

PATIENT
  Age: 51 Year
  Sex: Male
  Weight: 64 kg

DRUGS (1)
  1. OXYCONTIN [Suspect]
     Indication: CANCER PAIN
     Dosage: 15 MG, BID
     Route: 048
     Dates: start: 20080831, end: 20080901

REACTIONS (5)
  - Oliguria [Recovering/Resolving]
  - Infrequent bowel movements [Recovering/Resolving]
  - Micturition urgency [Recovering/Resolving]
  - Micturition disorder [Recovering/Resolving]
  - Abdominal distension [Recovering/Resolving]
